FAERS Safety Report 25708964 (Version 1)
Quarter: 2025Q3

REPORT INFORMATION
  Report Type: Spontaneous
  Country: US (occurrence: US)
  Receive Date: 20250821
  Receipt Date: 20250821
  Transmission Date: 20251021
  Serious: Yes (Hospitalization)
  Sender: AMGEN
  Company Number: US-AMGEN-USASP2025162624

PATIENT
  Age: 73 Year
  Sex: Female

DRUGS (1)
  1. EVENITY [Suspect]
     Active Substance: ROMOSOZUMAB-AQQG
     Indication: Osteoporosis
     Dosage: 210 MILLIGRAM, QMO
     Route: 065
     Dates: start: 20240507, end: 20250427

REACTIONS (4)
  - Atypical femur fracture [Recovering/Resolving]
  - Product dose omission issue [Unknown]
  - Procedural pain [Unknown]
  - Post procedural swelling [Unknown]

NARRATIVE: CASE EVENT DATE: 20250101
